FAERS Safety Report 8177773-8 (Version None)
Quarter: 2012Q1

REPORT INFORMATION
  Report Type: 
  Country: None (occurrence: None)
  Receive Date: 20120301
  Receipt Date: 20120223
  Transmission Date: 20120608
  Serious: Yes (Hospitalization)
  Sender: FDA-Public Use
  Company Number: US-JNJFOC-20111108885

PATIENT
  Sex: Female
  Weight: 62.14 kg

DRUGS (6)
  1. MESALAMINE [Concomitant]
     Route: 048
  2. REMICADE [Suspect]
     Indication: CROHN'S DISEASE
     Route: 042
     Dates: start: 20101215
  3. VITAMIN B-COMPLEX, OTHER COMBINATIONS [Concomitant]
  4. VANCOMYCIN [Concomitant]
     Indication: CLOSTRIDIAL INFECTION
     Route: 048
  5. ATIVAN [Concomitant]
  6. MULTIPLE VITAMIN [Concomitant]

REACTIONS (1)
  - CROHN'S DISEASE [None]
